FAERS Safety Report 9208281 (Version 1)
Quarter: 2013Q2

REPORT INFORMATION
  Report Type: Spontaneous
  Country: US (occurrence: US)
  Receive Date: 20130403
  Receipt Date: 20130403
  Transmission Date: 20140414
  Serious: Yes (Hospitalization)
  Sender: FDA-Public Use
  Company Number: US-B.I. PHARMACEUTICALS,INC./RIDGEFIELD-2013-BI-08664BP

PATIENT
  Age: 72 Year
  Sex: Male
  Weight: 73 kg

DRUGS (15)
  1. SPIRIVA [Suspect]
     Indication: CHRONIC OBSTRUCTIVE PULMONARY DISEASE
     Dosage: 18 MCG
     Route: 055
     Dates: start: 2011
  2. SPIRIVA [Suspect]
     Route: 048
     Dates: start: 20130328, end: 20130328
  3. SIMVASTATIN [Concomitant]
  4. ROBAXIN [Concomitant]
  5. MULTIVITAMIN [Concomitant]
  6. PROAIR [Concomitant]
  7. NORCO [Concomitant]
  8. ALBUTEROL [Concomitant]
  9. ALLOPURINOL [Concomitant]
  10. TERAZOSIN [Concomitant]
  11. CYMBALTA [Concomitant]
     Indication: NEUROPATHY PERIPHERAL
  12. ISOSORBIDE [Concomitant]
  13. ASPIRIN [Concomitant]
  14. LISINOPRIL [Concomitant]
  15. ADVAIR [Concomitant]

REACTIONS (4)
  - Obesity [Recovered/Resolved]
  - Dry mouth [Recovered/Resolved]
  - Oropharyngeal pain [Recovered/Resolved]
  - Incorrect route of drug administration [Recovered/Resolved]
